FAERS Safety Report 5152039-9 (Version None)
Quarter: 2006Q4

REPORT INFORMATION
  Report Type: 
  Country: None (occurrence: None)
  Receive Date: 20061110
  Receipt Date: 20061110
  Transmission Date: 20070319
  Serious: Yes (Other)
  Sender: FDA-Public Use
  Company Number: None

PATIENT
  Age: 14 Year
  Sex: Male
  Weight: 89.8122 kg

DRUGS (1)
  1. ADDERALL 5 [Suspect]
     Indication: ATTENTION DEFICIT/HYPERACTIVITY DISORDER
     Dosage: 5MG  TWICE DAILY  P.O.
     Route: 048
     Dates: start: 20061024, end: 20061107

REACTIONS (3)
  - CHEST PAIN [None]
  - PALPITATIONS [None]
  - TREMOR [None]
